FAERS Safety Report 11103447 (Version 2)
Quarter: 2015Q2

REPORT INFORMATION
  Report Type: Spontaneous
  Country: KR (occurrence: KR)
  Receive Date: 20150511
  Receipt Date: 20150615
  Transmission Date: 20150821
  Serious: Yes (Other)
  Sender: FDA-Public Use
  Company Number: KR-GLAXOSMITHKLINE-KR2015GSK056650

PATIENT
  Sex: Male

DRUGS (2)
  1. SERETIDE [Suspect]
     Active Substance: FLUTICASONE FUROATE\SALMETEROL XINAFOATE
     Indication: ASTHMA
     Dosage: UNK
     Route: 055
  2. ETHEOPHYL [Concomitant]
     Indication: ASTHMA
     Dosage: UNK
     Route: 048

REACTIONS (4)
  - Oropharyngeal discomfort [Unknown]
  - Inappropriate schedule of drug administration [Unknown]
  - Pharyngeal haemorrhage [Recovered/Resolved]
  - Retching [Unknown]
